FAERS Safety Report 10017204 (Version 2)
Quarter: 2014Q1

REPORT INFORMATION
  Report Type: Spontaneous
  Country: US (occurrence: US)
  Receive Date: 20140318
  Receipt Date: 20140318
  Transmission Date: 20141002
  Serious: Yes (Other)
  Sender: FDA-Public Use
  Company Number: PHHY2014US004035

PATIENT
  Age: 28 Year
  Sex: Female

DRUGS (10)
  1. DOXORUBICIN [Suspect]
     Indication: INVASIVE DUCTAL BREAST CARCINOMA
  2. PACLITAXEL [Suspect]
     Indication: INVASIVE DUCTAL BREAST CARCINOMA
  3. ANASTROZOLE [Suspect]
     Indication: INVASIVE DUCTAL BREAST CARCINOMA
  4. TAMOXIFEN [Suspect]
     Indication: BREAST CANCER STAGE II
  5. FEMARA [Suspect]
     Indication: OVULATION INDUCTION
     Dosage: 5 MG, QD
     Route: 048
  6. LUPRON [Suspect]
     Indication: INVASIVE DUCTAL BREAST CARCINOMA
     Dosage: 3.75 MG, UNK
  7. CYCLOPHOSPHAMIDE [Suspect]
     Indication: INVASIVE DUCTAL BREAST CARCINOMA
  8. RADIATION THERAPY [Suspect]
  9. GONAL-F [Suspect]
     Dosage: 450 IU, UNK
  10. LUVERIS [Suspect]
     Dosage: 150 IU, UNK

REACTIONS (5)
  - Ovarian failure [Unknown]
  - Amenorrhoea [Unknown]
  - Abdominal distension [Unknown]
  - Nausea [Unknown]
  - Maternal exposure during pregnancy [Unknown]
